FAERS Safety Report 6085722-1 (Version None)
Quarter: 2009Q1

REPORT INFORMATION
  Report Type: 
  Country: None (occurrence: None)
  Receive Date: 20090220
  Receipt Date: 20090211
  Transmission Date: 20090719
  Serious: Yes (Other)
  Sender: FDA-Public Use
  Company Number: PHEH2008US09403

PATIENT
  Sex: Female
  Weight: 53.968 kg

DRUGS (1)
  1. RECLAST [Suspect]
     Indication: OSTEOPOROSIS
     Dosage: 5 MG, UNK
     Dates: start: 20081020, end: 20081020

REACTIONS (11)
  - ARTHRALGIA [None]
  - CONDITION AGGRAVATED [None]
  - DIZZINESS [None]
  - DRUG TOXICITY [None]
  - DRY MOUTH [None]
  - FATIGUE [None]
  - HEADACHE [None]
  - IRRITABILITY [None]
  - MYALGIA [None]
  - NAUSEA [None]
  - SOMNOLENCE [None]
